FAERS Safety Report 14355395 (Version 1)
Quarter: 2018Q1

REPORT INFORMATION
  Report Type: Report from Study
  Country: US (occurrence: US)
  Receive Date: 20180105
  Receipt Date: 20180105
  Transmission Date: 20180509
  Serious: Yes (Other)
  Sender: FDA-Public Use
  Company Number: US-TEVA-2018-US-843534

PATIENT
  Age: 80 Year
  Sex: Female

DRUGS (3)
  1. FORMOTEROL [Suspect]
     Active Substance: FORMOTEROL
     Indication: IMMUNOSUPPRESSANT DRUG THERAPY
  2. BUDESONIDE. [Suspect]
     Active Substance: BUDESONIDE
     Indication: IMMUNOSUPPRESSANT DRUG THERAPY
  3. ZOSTAVAX [Suspect]
     Active Substance: VARICELLA-ZOSTER VIRUS STRAIN OKA/MERCK LIVE ANTIGEN
     Indication: HERPES ZOSTER

REACTIONS (2)
  - Herpes zoster cutaneous disseminated [Recovered/Resolved]
  - Vaccination failure [Unknown]
